FAERS Safety Report 8103841-2 (Version None)
Quarter: 2012Q1

REPORT INFORMATION
  Report Type: 
  Country: None (occurrence: None)
  Receive Date: 20120201
  Receipt Date: 20120120
  Transmission Date: 20120608
  Serious: Yes (Other)
  Sender: FDA-Public Use
  Company Number: PHEH2012US001858

PATIENT
  Age: 75 Year
  Sex: Female

DRUGS (1)
  1. TEGRETOL [Suspect]
     Dosage: 200 MG, BID

REACTIONS (3)
  - FEAR OF FALLING [None]
  - UPPER LIMB FRACTURE [None]
  - GAIT DISTURBANCE [None]
